FAERS Safety Report 9274648 (Version 1)
Quarter: 2013Q2

REPORT INFORMATION
  Report Type: Spontaneous
  Country: GB (occurrence: GB)
  Receive Date: 20130507
  Receipt Date: 20130507
  Transmission Date: 20140414
  Serious: Yes (Other)
  Sender: FDA-Public Use
  Company Number: GB-RANBAXY-2013R1-68321

PATIENT
  Age: 47 Year
  Sex: Female
  Weight: 78.46 kg

DRUGS (8)
  1. NAPROXEN [Suspect]
     Indication: MYOSITIS
     Dosage: UNK
     Route: 048
     Dates: start: 20130411, end: 20130411
  2. NAPROXEN [Suspect]
     Indication: MYOSITIS
     Dosage: UNK
     Route: 048
     Dates: start: 20130412, end: 20130412
  3. IBUPROFEN [Concomitant]
     Indication: PRODUCT USED FOR UNKNOWN INDICATION
     Route: 065
  4. MEBEVERINE [Concomitant]
     Indication: PRODUCT USED FOR UNKNOWN INDICATION
     Dosage: UNK
     Route: 065
  5. MEFENAMIC ACID [Concomitant]
     Indication: PRODUCT USED FOR UNKNOWN INDICATION
     Dosage: UNK
     Route: 065
  6. MIGRALEVE PINK [Concomitant]
     Indication: PRODUCT USED FOR UNKNOWN INDICATION
     Dosage: UNK
     Route: 065
  7. MIGRALEVE YELLOW [Concomitant]
     Indication: PRODUCT USED FOR UNKNOWN INDICATION
     Dosage: UNK
     Route: 065
  8. OMEPRAZOLE [Concomitant]
     Indication: PRODUCT USED FOR UNKNOWN INDICATION
     Dosage: UNK
     Route: 065

REACTIONS (15)
  - Hypersensitivity [Recovering/Resolving]
  - Peripheral coldness [Unknown]
  - Disturbance in attention [Recovered/Resolved]
  - Cyanosis [Recovered/Resolved with Sequelae]
  - Cardiovascular disorder [Unknown]
  - Somnolence [Not Recovered/Not Resolved]
  - Swelling face [Unknown]
  - Headache [Unknown]
  - Sensory loss [Not Recovered/Not Resolved]
  - Memory impairment [Recovered/Resolved]
  - Hypoaesthesia [Unknown]
  - Local swelling [Not Recovered/Not Resolved]
  - Paraesthesia [Not Recovered/Not Resolved]
  - Tinnitus [Unknown]
  - Abnormal dreams [Not Recovered/Not Resolved]
